FAERS Safety Report 5922578-9 (Version None)
Quarter: 2008Q4

REPORT INFORMATION
  Report Type: 
  Country: None (occurrence: None)
  Receive Date: 20081017
  Receipt Date: 20081009
  Transmission Date: 20090506
  Serious: Yes (Hospitalization)
  Sender: FDA-Public Use
  Company Number: CA-ROCHE-405992

PATIENT
  Sex: Male
  Weight: 95.9 kg

DRUGS (18)
  1. CAPECITABINE [Suspect]
     Dosage: TWO WEEKS TREATMENT FOLLOWED BY ONE WEEK REST. STRENGTH: 150 MG/ 500 MG
     Route: 048
     Dates: start: 20050504, end: 20050525
  2. CAPECITABINE [Suspect]
     Dosage: TWO WEEKS TREATMENT FOLLOWED BY ONE WEEK REST.
     Route: 048
     Dates: end: 20050622
  3. BEVACIZUMAB [Suspect]
     Dosage: DOSE FORM REPORTED AS: INFUSION
     Route: 042
     Dates: start: 20050504, end: 20050608
  4. OXALIPLATIN [Suspect]
     Dosage: STRENGTH: 50 MG/ 100 MG DOSE FORM REPORTED AS INFUSION
     Route: 042
     Dates: start: 20050504, end: 20050525
  5. OXALIPLATIN [Suspect]
     Route: 042
     Dates: end: 20050622
  6. METOPROLOL TARTRATE [Concomitant]
     Dates: start: 20050604
  7. NITRO-DUR [Concomitant]
     Dates: start: 20050617, end: 20050622
  8. RAMIPRIL [Concomitant]
     Dates: start: 20050603
  9. CRESTOR [Concomitant]
     Dates: start: 20040101
  10. OXAZEPAM [Concomitant]
     Dates: start: 20050617, end: 20050621
  11. PANTOPRAZOLE SODIUM [Concomitant]
     Dates: start: 20050617, end: 20050622
  12. TIMOPTIC [Concomitant]
  13. PLAVIX [Concomitant]
     Dates: start: 20050617, end: 20070117
  14. ENTROPHEN [Concomitant]
     Dates: start: 20050603, end: 20080617
  15. PLAVIX [Concomitant]
     Dates: start: 20050617, end: 20050617
  16. PLAVIX [Concomitant]
     Dates: start: 20050618
  17. ENTROPHEN [Concomitant]
     Dates: start: 20050603, end: 20050617
  18. ENTROPHEN [Concomitant]
     Dates: start: 20050618

REACTIONS (2)
  - ANGINA UNSTABLE [None]
  - CORONARY ARTERY DISEASE [None]
